FAERS Safety Report 4909063-8 (Version None)
Quarter: 2006Q1

REPORT INFORMATION
  Report Type: 
  Country: None (occurrence: None)
  Receive Date: 20060213
  Receipt Date: 20060130
  Transmission Date: 20060701
  Serious: Yes (Hospitalization)
  Sender: FDA-Public Use
  Company Number: GBWYE343730JAN06

PATIENT
  Age: 72 Year
  Sex: Female
  Weight: 45 kg

DRUGS (12)
  1. ENBREL [Suspect]
     Indication: RHEUMATOID ARTHRITIS
     Route: 058
     Dates: start: 20050720, end: 20051222
  2. ENBREL [Suspect]
     Route: 058
     Dates: start: 20060120
  3. ASPIRIN [Concomitant]
     Indication: CEREBROVASCULAR ACCIDENT
     Dates: start: 20051226
  4. SIMVASTATIN [Concomitant]
     Indication: CEREBROVASCULAR ACCIDENT
     Dates: start: 20051228
  5. DIDRONEL [Concomitant]
     Indication: OSTEOPOROSIS
     Dates: start: 20040531
  6. PREDNISOLONE [Concomitant]
     Indication: RHEUMATOID ARTHRITIS
     Dates: start: 20030228
  7. ACETAMINOPHEN [Concomitant]
     Indication: PAIN
     Dosage: 1G 4-6 HOURLY, AS REQUIRED
  8. IBUPROFEN [Concomitant]
     Indication: PAIN
     Dosage: 400MG, THREE TIMES DAILY AS REQUIRED
  9. OMEPRAZOLE [Concomitant]
     Indication: PROPHYLAXIS
  10. BETAMETHASONE SODIUM PHOSPHATE [Concomitant]
     Indication: CORNEAL DYSTROPHY
     Dosage: 1 DROP ONCE DAILY ON ALTERNATE DAYS TO EACH EYE
     Route: 047
  11. BETAMETHASONE SODIUM PHOSPHATE [Concomitant]
     Indication: UVEITIS
  12. CANDESARTAN [Concomitant]
     Indication: HYPERTENSION
     Dates: start: 20020730, end: 20051221

REACTIONS (3)
  - DYSARTHRIA [None]
  - HEMIPARESIS [None]
  - PARAESTHESIA [None]
